FAERS Safety Report 8840936 (Version 1)
Quarter: 2012Q4

REPORT INFORMATION
  Report Type: 
  Country: IT (occurrence: IT)
  Receive Date: 20121015
  Receipt Date: 20121015
  Transmission Date: 20130627
  Serious: Yes (Hospitalization)
  Sender: FDA-Public Use
  Company Number: PHHY2012IT089895

PATIENT
  Age: 66 Year
  Sex: Male
  Weight: 60 kg

DRUGS (2)
  1. LEVOFLOXACIN [Suspect]
     Indication: BRONCHITIS
     Dosage: 1 posological unit daily
     Dates: start: 20120928, end: 20120930
  2. PARACODINA [Suspect]
     Indication: COUGH
     Dosage: 1 posological unit daily
     Route: 048
     Dates: start: 20120928, end: 20120930

REACTIONS (4)
  - Bronchitis [Recovering/Resolving]
  - Urticaria [Recovering/Resolving]
  - Blood immunoglobulin E increased [Recovering/Resolving]
  - Eosinophilia [Recovering/Resolving]
